FAERS Safety Report 22860807 (Version 2)
Quarter: 2023Q4

REPORT INFORMATION
  Report Type: Spontaneous
  Country: JP (occurrence: None)
  Receive Date: 20230824
  Receipt Date: 20231020
  Transmission Date: 20240109
  Serious: Yes (Hospitalization)
  Sender: FDA-Public Use
  Company Number: 2023A188292

PATIENT
  Age: 66 Year
  Sex: Female
  Weight: 38 kg

DRUGS (7)
  1. IMFINZI [Suspect]
     Active Substance: DURVALUMAB
     Indication: Non-small cell lung cancer
     Route: 041
     Dates: start: 20221227, end: 20230419
  2. ERYTHROCIN [Suspect]
     Active Substance: ERYTHROMYCIN LACTOBIONATE
     Indication: Bronchitis chronic
     Route: 048
     Dates: start: 20230215
  3. FUDOSTEINE [Suspect]
     Active Substance: FUDOSTEINE
     Indication: Bronchitis chronic
     Route: 048
     Dates: start: 20230112
  4. SODIUM FERROUS CITRATE [Concomitant]
     Active Substance: SODIUM FERROUS CITRATE
     Dosage: AFTER BREAKFAST
     Route: 048
     Dates: start: 20221222
  5. AMBROXOL HYDROCHLORIDE [Concomitant]
     Active Substance: AMBROXOL HYDROCHLORIDE
     Dosage: AFTER BREAKFAST
     Route: 048
  6. DEXTROMETHORPHAN HYDROBROMIDE [Concomitant]
     Active Substance: DEXTROMETHORPHAN HYDROBROMIDE
     Dosage: AFTER EACH MEALS
     Route: 048
     Dates: end: 20230717
  7. CALONAL [Concomitant]
     Active Substance: ACETAMINOPHEN
     Dosage: WHEN CHEST PAIN500.0MG UNKNOWN
     Route: 048
     Dates: end: 20230717

REACTIONS (3)
  - Drug-induced liver injury [Recovering/Resolving]
  - Pneumonia bacterial [Recovering/Resolving]
  - Bronchitis chronic [Unknown]

NARRATIVE: CASE EVENT DATE: 20230120
